FAERS Safety Report 8696705 (Version 3)
Quarter: 2012Q4

REPORT INFORMATION
  Report Type: 
  Country: US (occurrence: US)
  Receive Date: 20120801
  Receipt Date: 20120903
  Transmission Date: 20130627
  Serious: No
  Sender: FDA-Public Use
  Company Number: US-PFIZER INC-2012185605

PATIENT
  Age: 76 Year
  Sex: Female
  Weight: 101.13 kg

DRUGS (18)
  1. LYRICA [Suspect]
     Dosage: 100 mg, 2x/day
     Route: 048
  2. NORVASC [Suspect]
     Dosage: 10 mg, 1x/day (1 time per day)
     Route: 048
  3. METFORMIN [Concomitant]
     Indication: DIABETES MELLITUS
     Dosage: 500 mg, 2x/day (2 times per day)
     Route: 048
  4. METFORMIN [Concomitant]
     Dosage: 500 mg, 3x/day (tid)
  5. ULTRAM [Concomitant]
     Dosage: 500 mg, 1 Tablet by Oral route every 12 hours
     Route: 048
  6. MECLIZINE [Concomitant]
     Dosage: 12.5 mg, 2x/day (1 tablet by Oral route 2 times per day PRN)
     Route: 048
  7. VISTARIL [Concomitant]
     Dosage: 25 mg, 1x/day (1 Tablet by Oral route 1 time per day qhs)
     Route: 048
  8. ACIPHEX [Concomitant]
     Dosage: 20 mg, 1x/day (1 tablet by Oral route 1 time per day)
     Route: 048
  9. LASIX [Concomitant]
     Dosage: 20 mg, as needed (take 1 tablet by Oral route 1 PRN)
     Route: 048
  10. DYAZIDE [Concomitant]
     Dosage: 1x/day (25 mg-37.5 mg 1 Tablet by Oral route 1 time per day)
     Route: 048
  11. CATAPRES [Concomitant]
     Indication: BLOOD PRESSURE ABNORMAL
     Dosage: 0.2 mg, 1 tablet 1 hs
     Route: 048
  12. TENORMIN [Concomitant]
     Dosage: 50 mg, 2x/day (1 Tablet by Oral route 2 times per day)
     Route: 048
  13. RANITIDINE [Concomitant]
     Dosage: 150 mg, 1x/day (1 capsule by Oral route 1 time per day)
     Route: 048
  14. CALCIUM WITH VITAMIN D [Concomitant]
     Dosage: 1x/day (100/40 mg Tablet SIG: orally once a day OTC)
     Route: 048
  15. FISH OIL [Concomitant]
     Dosage: 1200 mg, UNK
  16. ASPIRIN [Concomitant]
     Dosage: 81 mg, 1x/day (SIG: once a day)
  17. MULTIVITAMINS [Concomitant]
     Dosage: UNK
  18. PRILOSEC [Concomitant]
     Indication: GASTROOESOPHAGEAL REFLUX DISEASE
     Dosage: 20 mg, 1x/day (1 capsule by oral route 1 time per day)
     Route: 048

REACTIONS (6)
  - Pain in extremity [Unknown]
  - Memory impairment [Unknown]
  - Oedema peripheral [Unknown]
  - Dysuria [Unknown]
  - Dyspepsia [Unknown]
  - Depressed mood [Unknown]
